FAERS Safety Report 14375223 (Version 1)
Quarter: 2018Q1

REPORT INFORMATION
  Report Type: Spontaneous
  Country: US (occurrence: US)
  Receive Date: 20180110
  Receipt Date: 20180110
  Transmission Date: 20180509
  Serious: Yes (Death)
  Sender: FDA-Public Use
  Company Number: None

PATIENT
  Age: 78 Year
  Sex: Male

DRUGS (25)
  1. MAGNESIUM [Concomitant]
     Active Substance: MAGNESIUM
  2. KLOR-CON [Concomitant]
     Active Substance: POTASSIUM CHLORIDE
  3. JANUVIA [Concomitant]
     Active Substance: SITAGLIPTIN PHOSPHATE
  4. VITAMIN B12 [Concomitant]
     Active Substance: CYANOCOBALAMIN
  5. FINASTERIDE. [Concomitant]
     Active Substance: FINASTERIDE
  6. TRAMADOL. [Concomitant]
     Active Substance: TRAMADOL
  7. RANITIDINE. [Concomitant]
     Active Substance: RANITIDINE
  8. OMPERAZOLE [Concomitant]
     Active Substance: OMEPRAZOLE
  9. BICALUTAMIDE. [Concomitant]
     Active Substance: BICALUTAMIDE
  10. SERTRALINE [Concomitant]
     Active Substance: SERTRALINE HYDROCHLORIDE
  11. OXYCODONE [Concomitant]
     Active Substance: OXYCODONE
  12. LEVOTHYROXIN [Concomitant]
     Active Substance: LEVOTHYROXINE
  13. FISH OIL [Concomitant]
     Active Substance: FISH OIL
  14. FENOFIBRATE. [Concomitant]
     Active Substance: FENOFIBRATE
  15. FENTANYL. [Concomitant]
     Active Substance: FENTANYL
  16. CASODEX [Concomitant]
     Active Substance: BICALUTAMIDE
  17. AMILORIDE [Concomitant]
     Active Substance: AMILORIDE
  18. METOPROLOL TARTRATE. [Concomitant]
     Active Substance: METOPROLOL TARTRATE
  19. GLIMEPIRIDE. [Concomitant]
     Active Substance: GLIMEPIRIDE
  20. FENOFIBRATE. [Concomitant]
     Active Substance: FENOFIBRATE
  21. DIGOXIN. [Concomitant]
     Active Substance: DIGOXIN
  22. XARELTO [Concomitant]
     Active Substance: RIVAROXABAN
  23. LUPRON [Suspect]
     Active Substance: LEUPROLIDE ACETATE
     Indication: PROSTATE CANCER
     Dosage: OTHER FREQUENCY:Q 3 MONTHS;?
     Route: 030
     Dates: start: 20140827, end: 20171209
  24. ATORVASTATIN [Concomitant]
     Active Substance: ATORVASTATIN
  25. FUROSEMIDE. [Concomitant]
     Active Substance: FUROSEMIDE

REACTIONS (1)
  - Death [None]

NARRATIVE: CASE EVENT DATE: 20171209
